FAERS Safety Report 7283878-6 (Version None)
Quarter: 2011Q1

REPORT INFORMATION
  Report Type: 
  Country: None (occurrence: None)
  Receive Date: 20110209
  Receipt Date: 20110203
  Transmission Date: 20110831
  Serious: Yes (Other)
  Sender: FDA-Public Use
  Company Number: GB-PFIZER INC-2011008718

PATIENT
  Sex: Male

DRUGS (2)
  1. SALAZOPYRIN [Suspect]
     Indication: PALINDROMIC RHEUMATISM
     Dosage: 500 MG, 2X/DAY
     Dates: start: 20101126
  2. HYDROXYCHLOROQUINE SULFATE [Concomitant]
     Indication: PALINDROMIC RHEUMATISM
     Dosage: 200 MG, 2X/DAY

REACTIONS (3)
  - ARTHRITIS [None]
  - CHROMATURIA [None]
  - CONTUSION [None]
